FAERS Safety Report 13736642 (Version 1)
Quarter: 2017Q3

REPORT INFORMATION
  Report Type: Spontaneous
  Country: US (occurrence: US)
  Receive Date: 20170710
  Receipt Date: 20170710
  Transmission Date: 20171127
  Serious: No
  Sender: FDA-Public Use
  Company Number: US-ALLERGAN-1714051US

PATIENT
  Age: 41 Year
  Sex: Female

DRUGS (6)
  1. VRAYLAR [Suspect]
     Active Substance: CARIPRAZINE
     Dosage: 3 MG, QD
     Route: 048
     Dates: start: 20161123, end: 20170111
  2. CLONIDINE. [Concomitant]
     Active Substance: CLONIDINE
  3. WELLBUTRIN [Concomitant]
     Active Substance: BUPROPION HYDROCHLORIDE
  4. SEROQUEL [Concomitant]
     Active Substance: QUETIAPINE FUMARATE
  5. BUSPAR [Concomitant]
     Active Substance: BUSPIRONE HYDROCHLORIDE
  6. VRAYLAR [Suspect]
     Active Substance: CARIPRAZINE
     Indication: BIPOLAR DISORDER
     Dosage: 1.5 MG, QD
     Route: 048
     Dates: start: 20161122, end: 20161122

REACTIONS (4)
  - Restlessness [Recovered/Resolved]
  - Extrapyramidal disorder [Recovered/Resolved]
  - Agitation [Recovered/Resolved]
  - Akathisia [Recovered/Resolved]
